FAERS Safety Report 4315274-5 (Version None)
Quarter: 2004Q1

REPORT INFORMATION
  Report Type: 
  Country: None (occurrence: None)
  Receive Date: 20040311
  Receipt Date: 20040227
  Transmission Date: 20041129
  Serious: Yes (Death)
  Sender: FDA-Public Use
  Company Number: 200410637JP

PATIENT
  Age: 80 Year
  Sex: Male

DRUGS (12)
  1. ARAVA [Suspect]
     Route: 048
     Dates: start: 20031122, end: 20031124
  2. AZULFIDINE [Concomitant]
     Indication: RHEUMATOID ARTHRITIS
     Route: 048
     Dates: end: 20031121
  3. LOXONIN [Concomitant]
     Indication: RHEUMATOID ARTHRITIS
     Route: 048
     Dates: end: 20031121
  4. MUCOSTA [Concomitant]
     Indication: PROPHYLAXIS
     Route: 048
     Dates: end: 20031121
  5. ALFAROL [Concomitant]
     Indication: OSTEOPOROSIS
     Route: 048
     Dates: end: 20031121
  6. PREDONINE [Concomitant]
     Indication: RHEUMATOID ARTHRITIS
     Route: 048
     Dates: start: 20040121, end: 20040120
  7. GASTER [Concomitant]
     Indication: GASTRITIS
     Route: 048
  8. HALCION [Concomitant]
     Indication: INSOMNIA
     Route: 048
  9. ETODOLAC [Concomitant]
     Indication: RHEUMATOID ARTHRITIS
     Route: 048
     Dates: start: 20031122
  10. TAMIFLU [Concomitant]
     Indication: INFLUENZA
     Route: 048
     Dates: start: 20040213, end: 20040217
  11. FAROM [Concomitant]
     Indication: INFLUENZA
     Route: 048
     Dates: start: 20040213, end: 20040217
  12. FAROM [Concomitant]
     Indication: PROPHYLAXIS
     Route: 048
     Dates: start: 20040213, end: 20040217

REACTIONS (5)
  - CHILLS [None]
  - DECREASED IMMUNE RESPONSIVENESS [None]
  - INFLUENZA [None]
  - PRODUCTIVE COUGH [None]
  - SPUTUM RETENTION [None]
